FAERS Safety Report 6596630-1 (Version None)
Quarter: 2010Q1

REPORT INFORMATION
  Report Type: 
  Country: None (occurrence: None)
  Receive Date: 20100216
  Receipt Date: 20100203
  Transmission Date: 20100710
  Serious: Yes (Other)
  Sender: FDA-Public Use
  Company Number: TRP_06467_2009

PATIENT
  Sex: Female

DRUGS (4)
  1. RIBASPHERE [Suspect]
     Indication: HEPATITIS C
     Dosage: (1200 MG, DAILY ORAL)
     Route: 048
     Dates: start: 20090529, end: 20100110
  2. COPEGUS [Suspect]
     Indication: HEPATITIS C
     Dosage: (200 MG BID ORAL)
     Route: 048
     Dates: start: 20090527
  3. PEGASYS [Suspect]
     Indication: HEPATITIS C
     Dosage: (180 UG SUBCUTANEOUS)
     Route: 058
     Dates: start: 20090529, end: 20100110
  4. ZOLOFT [Concomitant]

REACTIONS (6)
  - ABDOMINAL PAIN [None]
  - HAEMATEMESIS [None]
  - HAEMOPTYSIS [None]
  - NAUSEA [None]
  - SINUSITIS [None]
  - VOMITING [None]
